FAERS Safety Report 18900363 (Version 1)
Quarter: 2021Q1

REPORT INFORMATION
  Report Type: Spontaneous
  Country: US (occurrence: US)
  Receive Date: 20210216
  Receipt Date: 20210216
  Transmission Date: 20210420
  Serious: No
  Sender: FDA-Public Use
  Company Number: US-GLAXOSMITHKLINE-USCH2021006646

PATIENT
  Age: 34 Year
  Sex: Female

DRUGS (4)
  1. ALLI [Suspect]
     Active Substance: ORLISTAT
     Dosage: 3 DF
     Dates: start: 20210209
  2. ALLI [Suspect]
     Active Substance: ORLISTAT
     Dosage: 1 DF
     Dates: start: 20210211
  3. ALLI [Suspect]
     Active Substance: ORLISTAT
     Dosage: 3 DF
     Dates: start: 20210210
  4. ALLI [Suspect]
     Active Substance: ORLISTAT
     Indication: WEIGHT LOSS DIET
     Dosage: 1 DF
     Dates: start: 20210208

REACTIONS (3)
  - Chromaturia [Unknown]
  - Faeces discoloured [Unknown]
  - Lipiduria [Unknown]

NARRATIVE: CASE EVENT DATE: 20210211
